FAERS Safety Report 11246561 (Version 1)
Quarter: 2015Q3

REPORT INFORMATION
  Report Type: Spontaneous
  Country: US (occurrence: None)
  Receive Date: 20150706
  Receipt Date: 20150706
  Transmission Date: 20151125
  Serious: Yes (Disabling)
  Sender: FDA-Public Use
  Company Number: None

PATIENT
  Age: 71 Year
  Sex: Female
  Weight: 81.65 kg

DRUGS (7)
  1. ALOE [Concomitant]
     Active Substance: ALOE
  2. COLACE [Concomitant]
     Active Substance: DOCUSATE SODIUM
  3. TRIAMCINALONE [Concomitant]
     Active Substance: TRIAMCINOLONE
  4. METAMUCIL [Concomitant]
     Active Substance: PLANTAGO SEED
  5. KETOCONAZOLE. [Concomitant]
     Active Substance: KETOCONAZOLE
  6. MIRALAX [Suspect]
     Active Substance: POLYETHYLENE GLYCOL 3350
     Indication: CONSTIPATION
  7. NEXIUM [Concomitant]
     Active Substance: ESOMEPRAZOLE MAGNESIUM

REACTIONS (1)
  - Memory impairment [None]
